FAERS Safety Report 10058864 (Version 2)
Quarter: 2014Q2

REPORT INFORMATION
  Report Type: Spontaneous
  Country: PL (occurrence: PL)
  Receive Date: 20140404
  Receipt Date: 20140415
  Transmission Date: 20141212
  Serious: Yes (Death, Life-Threatening, Hospitalization, Other)
  Sender: FDA-Public Use
  Company Number: PL-BAXTER-2014BAX016344

PATIENT
  Age: 80 Year
  Sex: Female

DRUGS (10)
  1. DIANEAL PD4 (GLUKOZA 1,36%) ZESTAW DO DIALIZY OTRZEWNOWEJ [Suspect]
     Indication: PERITONEAL DIALYSIS
     Route: 033
     Dates: start: 20130911
  2. DIANEAL PD4 (GLUKOZA 2,27%) ZESTAW DO DIALIZY OTRZEWNOWEJ [Suspect]
     Indication: PERITONEAL DIALYSIS
     Route: 033
     Dates: start: 20130911
  3. EXTRANEAL ZESTAW DO DIALIZY OTRZEWNOWEJ [Suspect]
     Indication: PERITONEAL DIALYSIS
     Route: 033
     Dates: start: 20130911
  4. CIPROFLOXACINE [Concomitant]
     Indication: PRODUCT USED FOR UNKNOWN INDICATION
     Route: 042
     Dates: start: 20140311, end: 20140325
  5. FUROSEMIDE [Concomitant]
     Indication: PRODUCT USED FOR UNKNOWN INDICATION
     Dosage: 3+2+0 TIMES
  6. CALPEROS [Concomitant]
     Indication: PRODUCT USED FOR UNKNOWN INDICATION
  7. THEOSPIREX [Concomitant]
     Indication: PRODUCT USED FOR UNKNOWN INDICATION
  8. WARFIN [Concomitant]
     Indication: PRODUCT USED FOR UNKNOWN INDICATION
  9. CEFAZOLIN [Concomitant]
     Indication: PRODUCT USED FOR UNKNOWN INDICATION
     Route: 033
     Dates: start: 20140307, end: 20140311
  10. BIOTUM [Concomitant]
     Indication: PRODUCT USED FOR UNKNOWN INDICATION
     Route: 033
     Dates: start: 20140307, end: 20140311

REACTIONS (8)
  - Cardiac arrest [Fatal]
  - Ventricular fibrillation [Fatal]
  - Circulatory collapse [Fatal]
  - Peritonitis bacterial [Fatal]
  - Fungal peritonitis [Fatal]
  - Cardiovascular insufficiency [Unknown]
  - Refusal of treatment by patient [Unknown]
  - Peritoneal dialysis complication [Unknown]
